FAERS Safety Report 8106924-6 (Version None)
Quarter: 2012Q1

REPORT INFORMATION
  Report Type: 
  Country: None (occurrence: None)
  Receive Date: 20120202
  Receipt Date: 20120123
  Transmission Date: 20120608
  Serious: Yes (Other)
  Sender: FDA-Public Use
  Company Number: US-EISAI INC-E3810-03999-SPO-US

PATIENT
  Sex: Female
  Weight: 54 kg

DRUGS (4)
  1. ACIPHEX [Suspect]
     Route: 048
     Dates: start: 19920101, end: 20100101
  2. PEPCID COMPLETE [Concomitant]
     Route: 065
  3. ACIPHEX [Suspect]
     Indication: GASTROOESOPHAGEAL REFLUX DISEASE
     Route: 048
     Dates: start: 20110901
  4. ACIPHEX [Suspect]
     Route: 048
     Dates: start: 20100101, end: 20110901

REACTIONS (7)
  - MUSCULOSKELETAL CHEST PAIN [None]
  - OESOPHAGEAL STENOSIS [None]
  - HIATUS HERNIA [None]
  - WEIGHT DECREASED [None]
  - BARRETT'S OESOPHAGUS [None]
  - OROPHARYNGEAL PAIN [None]
  - EROSIVE OESOPHAGITIS [None]
